FAERS Safety Report 19575912 (Version 1)
Quarter: 2021Q3

REPORT INFORMATION
  Report Type: Spontaneous
  Country: US (occurrence: US)
  Receive Date: 20210716
  Receipt Date: 20210716
  Transmission Date: 20211014
  Serious: Yes (Hospitalization)
  Sender: FDA-Public Use
  Company Number: None

PATIENT
  Age: 40 Year
  Sex: Female

DRUGS (17)
  1. BIOTIN [Concomitant]
     Active Substance: BIOTIN
  2. CALCIUM [Concomitant]
     Active Substance: CALCIUM
  3. IBURPOFEN [Concomitant]
  4. PAIN RELIEVE [Concomitant]
  5. VITAMIN A [Concomitant]
     Active Substance: VITAMIN A
  6. VITAMIN D [Concomitant]
     Active Substance: VITAMIN D NOS
  7. WELCHOL [Concomitant]
     Active Substance: COLESEVELAM HYDROCHLORIDE
  8. STELARA [Suspect]
     Active Substance: USTEKINUMAB
     Indication: CROHN^S DISEASE
     Dosage: 1 SYR Q4W SQ
     Route: 058
     Dates: start: 20190326
  9. ENOXAPARIN [Concomitant]
     Active Substance: ENOXAPARIN
  10. PEG?3350 ELECTROL [Concomitant]
  11. CHOLESTYRAM [Concomitant]
     Active Substance: CHOLESTYRAMINE
  12. AMOXICILLIN. [Concomitant]
     Active Substance: AMOXICILLIN
  13. GABAPENTIN. [Concomitant]
     Active Substance: GABAPENTIN
  14. METRONIDAZOL [Concomitant]
     Active Substance: METRONIDAZOLE
  15. VITAMIN B12 [Concomitant]
     Active Substance: CYANOCOBALAMIN
  16. CIPROFLOXACN [Concomitant]
     Active Substance: CIPROFLOXACIN
  17. NYSTATIN. [Concomitant]
     Active Substance: NYSTATIN

REACTIONS (2)
  - Therapy interrupted [None]
  - Intestinal resection [None]

NARRATIVE: CASE EVENT DATE: 20210615
